FAERS Safety Report 5826719-3 (Version None)
Quarter: 2008Q3

REPORT INFORMATION
  Report Type: 
  Country: None (occurrence: None)
  Receive Date: 20080725
  Receipt Date: 20080711
  Transmission Date: 20090109
  Serious: Yes (Hospitalization)
  Sender: FDA-Public Use
  Company Number: 2008AL004402

PATIENT
  Age: 82 Year
  Sex: Female
  Weight: 64.8644 kg

DRUGS (18)
  1. DIGOXIN [Suspect]
     Indication: CARDIAC DISORDER
     Dosage: 0.125 MG, DAILY/BID, PO
     Route: 048
     Dates: start: 20070101, end: 20080429
  2. HYZAAS [Concomitant]
  3. CARVEDILOL [Concomitant]
  4. ISISORBIDE [Concomitant]
  5. ZETIA [Concomitant]
  6. TRICOR [Concomitant]
  7. GLOMERPIRIDE [Concomitant]
  8. METFORMIN HCL [Concomitant]
  9. SYNTHROID [Concomitant]
  10. WARFARIN SODIUM [Concomitant]
  11. LAVOZA [Concomitant]
  12. LASIX [Concomitant]
  13. FOLIC ACID [Concomitant]
  14. ASPIRIN [Concomitant]
  15. VIT B-12 [Concomitant]
  16. VIT B-6 [Concomitant]
  17. STRESSTABS WITH ZINC [Concomitant]
  18. NITROSTAT [Concomitant]

REACTIONS (3)
  - HEART RATE DECREASED [None]
  - MYOCARDIAL INFARCTION [None]
  - NO THERAPEUTIC RESPONSE [None]
